FAERS Safety Report 14293657 (Version 2)
Quarter: 2017Q4

REPORT INFORMATION
  Report Type: Spontaneous
  Country: US (occurrence: US)
  Receive Date: 20171216
  Receipt Date: 20171221
  Transmission Date: 20180321
  Serious: Yes (Death, Hospitalization, Other)
  Sender: FDA-Public Use
  Company Number: US-ROCHE-2037336

PATIENT
  Age: 20 Year
  Sex: Female

DRUGS (1)
  1. TAMIFLU [Suspect]
     Active Substance: OSELTAMIVIR PHOSPHATE
     Indication: INFLUENZA
     Route: 065

REACTIONS (7)
  - Cardiac arrest [Unknown]
  - Dyspnoea [Unknown]
  - Pneumonia [Fatal]
  - Malaise [Not Recovered/Not Resolved]
  - Oxygen saturation decreased [Unknown]
  - Cough [Unknown]
  - Haemoptysis [Unknown]

NARRATIVE: CASE EVENT DATE: 20171126
